FAERS Safety Report 4690997-7 (Version None)
Quarter: 2005Q2

REPORT INFORMATION
  Report Type: 
  Country: None (occurrence: None)
  Receive Date: 20050615
  Receipt Date: 20050603
  Transmission Date: 20051028
  Serious: Yes (Hospitalization)
  Sender: FDA-Public Use
  Company Number: BE-BRISTOL-MYERS SQUIBB COMPANY-12992889

PATIENT
  Age: 31 Year
  Sex: Male

DRUGS (10)
  1. ATAZANAVIR [Suspect]
     Indication: HIV INFECTION
     Route: 048
  2. EPIVIR [Concomitant]
  3. VIREAD [Concomitant]
  4. RABEPRAZOLE SODIUM [Concomitant]
  5. ALDACTONE [Concomitant]
  6. LORAZEPAM [Concomitant]
  7. INDERAL [Concomitant]
  8. TRAMADOL HCL [Concomitant]
  9. LACTULOSE [Concomitant]
  10. LENDORM [Concomitant]

REACTIONS (7)
  - AMMONIA INCREASED [None]
  - ASTHENIA [None]
  - BACK PAIN [None]
  - HEADACHE [None]
  - PHOTOPHOBIA [None]
  - PSYCHOTIC DISORDER [None]
  - VERTIGO [None]
